FAERS Safety Report 24702497 (Version 1)
Quarter: 2024Q4

REPORT INFORMATION
  Report Type: Spontaneous
  Country: GB (occurrence: GB)
  Receive Date: 20241205
  Receipt Date: 20241205
  Transmission Date: 20250114
  Serious: Yes (Other)
  Sender: GLAXOSMITHKLINE
  Company Number: None

PATIENT

DRUGS (2)
  1. BENZOYL PEROXIDE\CLINDAMYCIN PHOSPHATE [Suspect]
     Active Substance: BENZOYL PEROXIDE\CLINDAMYCIN PHOSPHATE
     Indication: Ill-defined disorder
     Dosage: 1 DF, QD (APPLY THINLY ONCE DAILY IN THE EVENING) (BENZOYL PEROXIDE 3% / CLINDAMYCIN 1% GEL  )
     Route: 065
     Dates: start: 20240726
  2. AMITRIPTYLINE HYDROCHLORIDE [Concomitant]
     Active Substance: AMITRIPTYLINE HYDROCHLORIDE
     Indication: Ill-defined disorder
     Dosage: 1 DF, QD (TAKE ONE AT NIGHT)
     Route: 065
     Dates: start: 20240919, end: 20241017

REACTIONS (3)
  - Swelling face [Unknown]
  - Rash [Recovering/Resolving]
  - Hypersensitivity [Unknown]
